FAERS Safety Report 9156531 (Version 1)
Quarter: 2013Q1

REPORT INFORMATION
  Report Type: Spontaneous
  Country: GB (occurrence: None)
  Receive Date: 20130206
  Receipt Date: 20130206
  Transmission Date: 20140127
  Serious: Yes (Life-Threatening, Hospitalization, Disabling)
  Sender: FDA-Public Use
  Company Number: 2013-01749

PATIENT
  Age: 62 Year
  Sex: Female
  Weight: 75 kg

DRUGS (13)
  1. FLUOXETINE HYDROCHLORIDE (UNKNOWN) (FLUOXETINE HYDROCHLORIDE) [Suspect]
     Indication: DEPRESSION
     Dosage: 10 MG INITIALLY, INCREASED TO 20MG ON 10/01/2013
     Route: 048
     Dates: start: 20130107
  2. CLOBAZAM (CLOBAZAM) [Concomitant]
  3. PHENYTOIN (PHENYTOIN) [Concomitant]
  4. FERROUS FUMARATE (FERROUS FUMARATE) [Concomitant]
  5. CALCEOS (CALCIUM CARBONATE, COLECALCIFEROL) [Concomitant]
  6. LEVOTHYROXINE (LEVOTHYROXINE) [Concomitant]
  7. OLANZAPINE (OLANZAPINE) [Concomitant]
  8. TOPIRAMATE (TOPIRAMATE) [Concomitant]
  9. PARACETAMOL (PARACETAMOL) [Concomitant]
  10. HALOPERIDOL (HALOPERIDOL) (HALOPERIDOL) [Concomitant]
  11. SENNA   /00142201/ (SENNA ALEXANDRINA) [Concomitant]
  12. CHLORPHENAMINE (CHLORPHENAMINE) [Concomitant]
  13. PROCYCLIDINE (PROCYCLIDINE) [Concomitant]

REACTIONS (5)
  - Toxicity to various agents [None]
  - Anticonvulsant drug level increased [None]
  - Confusional state [None]
  - Coma scale abnormal [None]
  - Unresponsive to stimuli [None]
